FAERS Safety Report 12997343 (Version 2)
Quarter: 2017Q1

REPORT INFORMATION
  Report Type: Spontaneous
  Country: US (occurrence: US)
  Receive Date: 20161205
  Receipt Date: 20170306
  Transmission Date: 20170428
  Serious: No
  Sender: FDA-Public Use
  Company Number: US-ASTRAZENECA-2016SF25311

PATIENT
  Age: 772 Month
  Sex: Male
  Weight: 92.5 kg

DRUGS (6)
  1. ATORVASTATIN [Concomitant]
     Active Substance: ATORVASTATIN
  2. FML [Concomitant]
     Active Substance: FLUOROMETHOLONE
     Indication: KERATITIS
     Route: 031
     Dates: start: 1983
  3. GLUCOPHAGE [Concomitant]
     Active Substance: METFORMIN HYDROCHLORIDE
  4. FARXIGA [Suspect]
     Active Substance: DAPAGLIFLOZIN PROPANEDIOL
     Indication: TYPE 2 DIABETES MELLITUS
     Route: 048
     Dates: start: 2014
  5. UNSPECIFIED INGREDIENT [Concomitant]
     Active Substance: UNSPECIFIED INGREDIENT
  6. INSULIN [Concomitant]
     Active Substance: INSULIN NOS

REACTIONS (4)
  - Dehydration [Recovered/Resolved]
  - Glaucoma [Not Recovered/Not Resolved]
  - Constipation [Recovered/Resolved]
  - Muscle spasms [Recovered/Resolved]

NARRATIVE: CASE EVENT DATE: 201602
